FAERS Safety Report 6109486-8 (Version None)
Quarter: 2009Q1

REPORT INFORMATION
  Report Type: 
  Country: None (occurrence: None)
  Receive Date: 20090306
  Receipt Date: 20090306
  Transmission Date: 20090719
  Serious: Yes (Other)
  Sender: FDA-Public Use
  Company Number: None

PATIENT
  Sex: Male
  Weight: 104 kg

DRUGS (2)
  1. CAPECITABINE [Suspect]
     Indication: COLORECTAL CANCER METASTATIC
     Dosage: 2150MG BID PO
     Route: 048
     Dates: start: 20081229, end: 20090209
  2. LAPATANIB [Suspect]
     Dosage: 1250MG DAILY PO
     Route: 048

REACTIONS (1)
  - PARONYCHIA [None]
